FAERS Safety Report 8979939 (Version 3)
Quarter: 2014Q2

REPORT INFORMATION
  Report Type: Spontaneous
  Country: US (occurrence: US)
  Receive Date: 20121221
  Receipt Date: 20140429
  Transmission Date: 20141212
  Serious: No
  Sender: FDA-Public Use
  Company Number: US-009507513-1212USA007560

PATIENT
  Sex: Male

DRUGS (4)
  1. PROPECIA [Suspect]
     Indication: ANDROGENETIC ALOPECIA
     Dosage: 1 MG, QD
     Route: 048
     Dates: start: 2000, end: 20090529
  2. PROPECIA [Suspect]
     Dosage: 1 MG, 2 TABS DAILY
     Route: 048
     Dates: start: 20030819
  3. PROPECIA [Suspect]
     Dosage: 1 MG, UNK
     Route: 048
  4. FINASTERIDE [Suspect]
     Dosage: UNK MG, UNK
     Route: 048

REACTIONS (6)
  - Cognitive disorder [Not Recovered/Not Resolved]
  - Overdose [Unknown]
  - Seborrhoeic dermatitis [Unknown]
  - Sexual dysfunction [Not Recovered/Not Resolved]
  - Erectile dysfunction [Unknown]
  - Loss of libido [Unknown]
